FAERS Safety Report 5399719-8 (Version None)
Quarter: 2007Q3

REPORT INFORMATION
  Report Type: 
  Country: None (occurrence: None)
  Receive Date: 20070727
  Receipt Date: 20070719
  Transmission Date: 20080115
  Serious: Yes (Hospitalization)
  Sender: FDA-Public Use
  Company Number: DE-ABBOTT-07P-062-0375221-00

PATIENT
  Sex: Female
  Weight: 63 kg

DRUGS (8)
  1. HUMIRA [Suspect]
     Indication: RHEUMATOID ARTHRITIS
     Route: 058
     Dates: start: 20050818, end: 20070718
  2. PREDNISOLONE [Suspect]
     Indication: RHEUMATOID ARTHRITIS
     Route: 048
     Dates: start: 20031001
  3. INSULIN HUMAN [Concomitant]
     Indication: DIABETES MELLITUS
     Route: 058
  4. METOPROLOL SUCCINATE [Concomitant]
     Indication: HYPERTENSION
     Route: 048
  5. TORSEMIDE [Concomitant]
     Indication: HYPERTENSION
  6. HYDROCHLOROTHIAZIDE [Concomitant]
     Indication: HYPERTENSION
     Route: 048
  7. SIMVASTATIN [Concomitant]
     Indication: HYPERLIPIDAEMIA
     Route: 048
  8. ASPIRIN [Concomitant]
     Indication: MYOCARDIAL INFARCTION
     Route: 048

REACTIONS (4)
  - CORONARY ARTERY DISEASE [None]
  - IMPAIRED HEALING [None]
  - INFECTED SKIN ULCER [None]
  - PNEUMONIA [None]
